FAERS Safety Report 11926932 (Version 2)
Quarter: 2016Q1

REPORT INFORMATION
  Report Type: Spontaneous
  Country: US (occurrence: US)
  Receive Date: 20160119
  Receipt Date: 20160217
  Transmission Date: 20160526
  Serious: Yes (Death, Hospitalization, Other)
  Sender: FDA-Public Use
  Company Number: US-ASTRAZENECA-2016SE03418

PATIENT
  Age: 613 Month
  Sex: Female
  Weight: 70.6 kg

DRUGS (15)
  1. ADRIAMYCIN [Concomitant]
     Active Substance: DOXORUBICIN HYDROCHLORIDE
  2. LETROZOLE. [Concomitant]
     Active Substance: LETROZOLE
     Route: 048
     Dates: start: 20150811, end: 201510
  3. METOPROLOL TARTRATE. [Concomitant]
     Active Substance: METOPROLOL TARTRATE
     Route: 048
  4. AROMASIN [Concomitant]
     Active Substance: EXEMESTANE
     Dates: start: 20150313, end: 201507
  5. PERCOCET [Concomitant]
     Active Substance: ACETAMINOPHEN\OXYCODONE HYDROCHLORIDE
     Indication: PAIN
     Dosage: 7.5-325 MG, Q4-6H PRN
     Route: 048
  6. IBRANCE [Concomitant]
     Active Substance: PALBOCICLIB
     Indication: BREAST CANCER
     Dosage: 1 CAPSULE DAILY, TAKE 01-21 Q 28 DAYS
     Route: 048
     Dates: start: 20150811, end: 20151106
  7. XARELTO [Concomitant]
     Active Substance: RIVAROXABAN
     Route: 048
     Dates: start: 201507
  8. ARIMIDEX [Suspect]
     Active Substance: ANASTROZOLE
     Indication: BREAST CANCER
     Route: 048
     Dates: end: 20150313
  9. TAXOL [Concomitant]
     Active Substance: PACLITAXEL
  10. AFINITOR [Concomitant]
     Active Substance: EVEROLIMUS
     Dates: start: 20150522, end: 201506
  11. FUROSEMIDE. [Concomitant]
     Active Substance: FUROSEMIDE
     Route: 048
  12. DULCOLAX NOS [Concomitant]
     Active Substance: BISACODYL OR DOCUSATE SODIUM
     Dosage: 1 TABLET DAILY, AS REQUIRED
     Route: 048
  13. PANTOPRAZOLE SODIUM. [Concomitant]
     Active Substance: PANTOPRAZOLE SODIUM
     Route: 048
  14. METRONIDAZOLE. [Concomitant]
     Active Substance: METRONIDAZOLE
     Route: 048
  15. AVASTIN [Concomitant]
     Active Substance: BEVACIZUMAB

REACTIONS (11)
  - Death [Fatal]
  - Breast cancer [Unknown]
  - Metastases to spine [Not Recovered/Not Resolved]
  - Deep vein thrombosis [Unknown]
  - Cerebrovascular accident [Unknown]
  - Spinal compression fracture [Unknown]
  - Pleural effusion [Unknown]
  - Metastases to liver [Not Recovered/Not Resolved]
  - Pancreatitis [Not Recovered/Not Resolved]
  - Intestinal obstruction [Unknown]
  - Metastases to bone [Not Recovered/Not Resolved]

NARRATIVE: CASE EVENT DATE: 201011
